FAERS Safety Report 9758459 (Version 1)
Quarter: 2013Q4

REPORT INFORMATION
  Report Type: Spontaneous
  Country: US (occurrence: None)
  Receive Date: 20131216
  Receipt Date: 20131216
  Transmission Date: 20140711
  Serious: No
  Sender: FDA-Public Use
  Company Number: CABO-13002489

PATIENT
  Age: 71 Year
  Sex: Male
  Weight: 81 kg

DRUGS (1)
  1. COMETRIQ (CABOZANTINIB) CAPSULE [Suspect]
     Indication: LUNG ADENOCARCINOMA STAGE IV
     Dosage: 140 MG, QD, ORAL

REACTIONS (7)
  - Visual field defect [None]
  - Hot flush [None]
  - Incision site pain [None]
  - Fatigue [None]
  - Diarrhoea [None]
  - Erythema [None]
  - Epistaxis [None]
